FAERS Safety Report 10416812 (Version 1)
Quarter: 2014Q3

REPORT INFORMATION
  Report Type: Spontaneous
  Country: US (occurrence: US)
  Receive Date: 20140828
  Receipt Date: 20140828
  Transmission Date: 20150326
  Serious: No
  Sender: FDA-Public Use
  Company Number: US-009507513-1408USA013061

PATIENT
  Age: 34 Year
  Sex: Female
  Weight: 121.54 kg

DRUGS (3)
  1. IMPLANON [Suspect]
     Active Substance: ETONOGESTREL
     Indication: CONTRACEPTION
     Dosage: UNK
     Route: 059
     Dates: start: 201407, end: 20140821
  2. IMPLANON [Suspect]
     Active Substance: ETONOGESTREL
     Dosage: UNK
     Route: 059
  3. FLEXERIL [Concomitant]
     Active Substance: CYCLOBENZAPRINE HYDROCHLORIDE

REACTIONS (6)
  - Amenorrhoea [Unknown]
  - Mood swings [Unknown]
  - Abdominal pain [Unknown]
  - Overdose [Unknown]
  - Irritability [Unknown]
  - Medical device complication [Unknown]

NARRATIVE: CASE EVENT DATE: 201407
